FAERS Safety Report 7550549-8 (Version None)
Quarter: 2011Q2

REPORT INFORMATION
  Report Type: 
  Country: None (occurrence: None)
  Receive Date: 20110616
  Receipt Date: 20110609
  Transmission Date: 20111010
  Serious: Yes (Other)
  Sender: FDA-Public Use
  Company Number: US-PAR PHARMACEUTICAL, INC-2011SCPR003030

PATIENT

DRUGS (1)
  1. MEGACE ES [Suspect]
     Indication: WEIGHT INCREASED
     Dosage: 1 CAP FULL ONCE A DAY
     Route: 048

REACTIONS (3)
  - INTENTIONAL DRUG MISUSE [None]
  - ERECTILE DYSFUNCTION [None]
  - RENAL PAIN [None]
